FAERS Safety Report 19332099 (Version 4)
Quarter: 2022Q1

REPORT INFORMATION
  Report Type: Report from Study
  Country: US (occurrence: US)
  Receive Date: 20210529
  Receipt Date: 20220329
  Transmission Date: 20220423
  Serious: No
  Sender: FDA-Public Use
  Company Number: NVSC2021US121077

PATIENT
  Sex: Male

DRUGS (1)
  1. COSENTYX [Suspect]
     Active Substance: SECUKINUMAB
     Indication: Psoriasis
     Dosage: UNK UNK, QMO
     Route: 058

REACTIONS (6)
  - Condition aggravated [Unknown]
  - Pruritus [Unknown]
  - Pain [Unknown]
  - Illness [Unknown]
  - Headache [Unknown]
  - Inappropriate schedule of product administration [Unknown]
